FAERS Safety Report 5606232-9 (Version None)
Quarter: 2008Q1

REPORT INFORMATION
  Report Type: 
  Country: None (occurrence: None)
  Receive Date: 20080129
  Receipt Date: 20070403
  Transmission Date: 20080703
  Serious: No
  Sender: FDA-Public Use
  Company Number: A0641949A

PATIENT
  Age: 57 Year
  Sex: Male

DRUGS (5)
  1. WELLBUTRIN [Suspect]
     Indication: DEPRESSION
     Route: 048
     Dates: start: 20040101
  2. BUPROPION HYDROCHLORIDE [Suspect]
     Indication: DEPRESSION
     Dosage: 100MG VARIABLE DOSE
     Route: 048
     Dates: start: 20060901
  3. CLONAZEPAM [Suspect]
     Indication: ANXIETY
     Route: 048
  4. PAMELOR [Suspect]
     Indication: DRUG USE FOR UNKNOWN INDICATION
     Route: 048
  5. DOXEPIN HCL [Concomitant]
     Indication: DEPRESSION
     Route: 048

REACTIONS (7)
  - AMNESIA [None]
  - BENIGN PROSTATIC HYPERPLASIA [None]
  - PHARMACEUTICAL PRODUCT COMPLAINT [None]
  - POLLAKIURIA [None]
  - PROSTATOMEGALY [None]
  - SPEECH DISORDER [None]
  - URINARY TRACT OBSTRUCTION [None]
